FAERS Safety Report 11756018 (Version 2)
Quarter: 2015Q4

REPORT INFORMATION
  Report Type: Spontaneous
  Country: US (occurrence: US)
  Receive Date: 20151119
  Receipt Date: 20151228
  Transmission Date: 20160304
  Serious: Yes (Death)
  Sender: FDA-Public Use
  Company Number: US-PFIZER INC-2015394071

PATIENT
  Age: 89 Year
  Sex: Female

DRUGS (1)
  1. LYRICA [Suspect]
     Active Substance: PREGABALIN
     Dosage: 75 MG, 2X/DAY (AT BED TIME; 1 IN MORNING)
     Dates: start: 2013

REACTIONS (1)
  - Dementia Alzheimer^s type [Fatal]
